FAERS Safety Report 8520555-5 (Version None)
Quarter: 2012Q3

REPORT INFORMATION
  Report Type: 
  Country: None (occurrence: None)
  Receive Date: 20120719
  Receipt Date: 20120710
  Transmission Date: 20120928
  Serious: Yes (Other)
  Sender: FDA-Public Use
  Company Number: GB-NOVOPROD-355616

PATIENT
  Age: 63 Year
  Sex: Female

DRUGS (11)
  1. ASPIRIN [Concomitant]
     Dosage: UNK
  2. BUMETANIDE [Concomitant]
     Dosage: UNK
  3. ACETAMINOPHEN AND CODEINE PHOSPHATE [Concomitant]
     Dosage: UNK
  4. VICTOZA [Suspect]
     Indication: TYPE 2 DIABETES MELLITUS
     Dosage: 0.6 MG, QD
     Route: 058
     Dates: start: 20111117
  5. ATENOLOL [Concomitant]
     Dosage: UNK
  6. ISOSORBIDE MONONITRATE [Concomitant]
     Dosage: UNK
  7. AMLODIPINE [Concomitant]
     Dosage: UNK
  8. HUMALOG [Concomitant]
     Dosage: UNK
  9. METFORMIN HYDROCHLORIDE [Concomitant]
     Dosage: UNK
  10. ATORVASTATIN [Concomitant]
     Dosage: UNK
  11. ENALAPRIL MALEATE [Concomitant]
     Dosage: UNK

REACTIONS (1)
  - HYPERTHYROIDISM [None]
